FAERS Safety Report 19577108 (Version 1)
Quarter: 2021Q3

REPORT INFORMATION
  Report Type: Spontaneous
  Country: ES (occurrence: ES)
  Receive Date: 20210719
  Receipt Date: 20210719
  Transmission Date: 20211014
  Serious: Yes (Other)
  Sender: FDA-Public Use
  Company Number: ES-GUERBET-ES-20210052

PATIENT
  Sex: Female
  Weight: 67 kg

DRUGS (1)
  1. DOTAREM [Suspect]
     Active Substance: GADOTERATE MEGLUMINE
     Indication: PRODUCT USED FOR UNKNOWN INDICATION
     Route: 065
     Dates: start: 2021, end: 2021

REACTIONS (5)
  - Fatigue [Unknown]
  - Dizziness [Unknown]
  - Urticaria [Unknown]
  - Chest discomfort [Unknown]
  - Chills [Unknown]

NARRATIVE: CASE EVENT DATE: 2021
